FAERS Safety Report 4727994-9 (Version None)
Quarter: 2005Q3

REPORT INFORMATION
  Report Type: 
  Country: None (occurrence: None)
  Receive Date: 20050725
  Receipt Date: 20050331
  Transmission Date: 20060218
  Serious: No
  Sender: FDA-Public Use
  Company Number: USA050494641

PATIENT
  Age: 30 Year
  Sex: Male

DRUGS (1)
  1. STRATTERA [Suspect]
     Indication: ATTENTION DEFICIT/HYPERACTIVITY DISORDER
     Dosage: 40 MG/1 IN THE MORNING
     Dates: start: 20050330

REACTIONS (6)
  - DIZZINESS [None]
  - ENERGY INCREASED [None]
  - FEELING DRUNK [None]
  - INITIAL INSOMNIA [None]
  - NASAL DISCOMFORT [None]
  - NASAL DRYNESS [None]
